FAERS Safety Report 24307641 (Version 1)
Quarter: 2024Q3

REPORT INFORMATION
  Report Type: Report from Study
  Country: JP (occurrence: JP)
  Receive Date: 20240911
  Receipt Date: 20240911
  Transmission Date: 20241017
  Serious: Yes (Death)
  Sender: SHIONOGI
  Company Number: JP-shionogi-202407025_FTR_P_1

PATIENT

DRUGS (13)
  1. FETROJA [Suspect]
     Active Substance: CEFIDEROCOL SULFATE TOSYLATE
     Indication: Infectious pleural effusion
     Dosage: 1.5 G, 1 PER 12 HOUR
     Route: 041
     Dates: start: 20240516, end: 20240608
  2. NOREPINEPHRINE [Concomitant]
     Active Substance: NOREPINEPHRINE\NOREPINEPHRINE BITARTRATE
     Dosage: UNK
     Route: 065
     Dates: end: 20240613
  3. HUMULIN R [Concomitant]
     Active Substance: INSULIN HUMAN
     Dosage: UNK
     Route: 065
     Dates: end: 20240619
  4. CELLCEPT [Concomitant]
     Active Substance: MYCOPHENOLATE MOFETIL
     Dosage: UNK
     Route: 048
     Dates: end: 20240524
  5. PREVYMIS [Concomitant]
     Active Substance: LETERMOVIR
     Dosage: UNK
     Route: 048
     Dates: end: 20240628
  6. ATOVAQUONE [Concomitant]
     Active Substance: ATOVAQUONE
     Dosage: UNK
     Route: 048
     Dates: end: 20240628
  7. PROGRAF [Concomitant]
     Active Substance: TACROLIMUS
     Dosage: UNK
     Route: 048
     Dates: end: 20240628
  8. BISOPROLOL [Concomitant]
     Active Substance: BISOPROLOL\BISOPROLOL FUMARATE
     Dosage: UNK
     Route: 065
     Dates: end: 20240628
  9. LEVOTHYROXINE SODIUM [Concomitant]
     Active Substance: LEVOTHYROXINE SODIUM
     Dosage: UNK
     Route: 048
     Dates: end: 20240628
  10. PREDNISOLONE [Concomitant]
     Active Substance: PREDNISOLONE
     Dosage: UNK
     Route: 048
     Dates: end: 20240628
  11. IMURAN [Concomitant]
     Active Substance: AZATHIOPRINE
     Dosage: UNK
     Route: 048
     Dates: start: 20240525, end: 20240628
  12. MINOCYCLINE HYDROCHLORIDE [Concomitant]
     Active Substance: MINOCYCLINE HYDROCHLORIDE
     Indication: Infectious pleural effusion
     Dosage: 100 MG, 1 PER 12 HOUR
     Route: 065
     Dates: end: 20240628
  13. DAPTOMYCIN [Concomitant]
     Active Substance: DAPTOMYCIN
     Indication: Infectious pleural effusion
     Dosage: 350 MG, QD
     Route: 065
     Dates: start: 20240508, end: 20240628

REACTIONS (1)
  - Infectious pleural effusion [Fatal]

NARRATIVE: CASE EVENT DATE: 20240629
